FAERS Safety Report 8290035-3 (Version None)
Quarter: 2012Q2

REPORT INFORMATION
  Report Type: 
  Country: None (occurrence: None)
  Receive Date: 20120417
  Receipt Date: 20120404
  Transmission Date: 20120825
  Serious: Yes (Life-Threatening)
  Sender: FDA-Public Use
  Company Number: CA-JNJFOC-20120406792

PATIENT
  Sex: Female
  Weight: 107.96 kg

DRUGS (4)
  1. REMICADE [Suspect]
     Indication: PSORIATIC ARTHROPATHY
     Route: 042
     Dates: start: 20120103
  2. LASIX [Concomitant]
  3. VERAPAMIL [Concomitant]
  4. ASPIRIN [Concomitant]

REACTIONS (3)
  - DYSPNOEA [None]
  - GAIT DISTURBANCE [None]
  - OEDEMA [None]
